FAERS Safety Report 9366760 (Version 1)
Quarter: 2013Q2

REPORT INFORMATION
  Report Type: Spontaneous
  Country: GB (occurrence: None)
  Receive Date: 20130620
  Receipt Date: 20130620
  Transmission Date: 20140414
  Serious: Yes (Other)
  Sender: FDA-Public Use
  Company Number: 2013P1007818

PATIENT
  Age: 23 Year
  Sex: Female

DRUGS (6)
  1. FLUCONAZOLE [Suspect]
     Dates: start: 20130524
  2. BENZYDAMINE HYDROCHLORIDE [Concomitant]
  3. ETHINYLESTRADIOL [Concomitant]
  4. ETHINYLOESTRADIOL [Concomitant]
  5. NORETHISTERONE [Concomitant]
  6. AMOXICILLIN [Concomitant]

REACTIONS (2)
  - Oral pain [None]
  - Oedema mouth [None]
